FAERS Safety Report 13543889 (Version 5)
Quarter: 2017Q3

REPORT INFORMATION
  Report Type: Report from Study
  Country: US (occurrence: US)
  Receive Date: 20170515
  Receipt Date: 20170815
  Transmission Date: 20171127
  Serious: Yes (Hospitalization)
  Sender: FDA-Public Use
  Company Number: US-GILEAD-2017-0272002

PATIENT
  Age: 46 Year
  Sex: Female
  Weight: 68.6 kg

DRUGS (2)
  1. AMBRISENTAN [Suspect]
     Active Substance: AMBRISENTAN
     Indication: PULMONARY HYPERTENSION
     Dosage: 10 MG, QD
     Route: 065
     Dates: start: 20160720
  2. AMBRISENTAN [Suspect]
     Active Substance: AMBRISENTAN
     Indication: SCLERODERMA

REACTIONS (9)
  - Skin burning sensation [Not Recovered/Not Resolved]
  - Vomiting [Not Recovered/Not Resolved]
  - Malaise [Not Recovered/Not Resolved]
  - Cough [Recovered/Resolved]
  - Dyspnoea [Not Recovered/Not Resolved]
  - Dyspnoea [Recovered/Resolved]
  - Rash [Not Recovered/Not Resolved]
  - Pyrexia [Recovered/Resolved]
  - Diarrhoea [Not Recovered/Not Resolved]

NARRATIVE: CASE EVENT DATE: 201707
